FAERS Safety Report 5707145-4 (Version None)
Quarter: 2008Q2

REPORT INFORMATION
  Report Type: 
  Country: None (occurrence: None)
  Receive Date: 20080414
  Receipt Date: 20080414
  Transmission Date: 20081010
  Serious: Yes (Life-Threatening)
  Sender: FDA-Public Use
  Company Number: None

PATIENT
  Age: 86 Year
  Sex: Male
  Weight: 78 kg

DRUGS (13)
  1. PHENERGAN [Suspect]
     Indication: NAUSEA
     Dosage: 6.25 MG ONCE IV
     Route: 042
     Dates: start: 20080401, end: 20080401
  2. LEVAQUIN [Concomitant]
  3. BICALUTAMIDE [Concomitant]
  4. CENTRUM SILVER MULTI-VITAMIN [Concomitant]
  5. DOCUSATE [Concomitant]
  6. FELODIPINE [Concomitant]
  7. FERROUS SULFATE TAB [Concomitant]
  8. METOPROLOL SUCCINATE [Concomitant]
  9. MIRTAZAPINE [Concomitant]
  10. NIACIN [Concomitant]
  11. PROTONIX [Concomitant]
  12. ACETAMINOPHEN [Concomitant]
  13. SIMVASTATIN [Concomitant]

REACTIONS (5)
  - BLOOD PRESSURE IMMEASURABLE [None]
  - CARDIO-RESPIRATORY ARREST [None]
  - CONVULSION [None]
  - PULSE ABSENT [None]
  - UNRESPONSIVE TO STIMULI [None]
